FAERS Safety Report 5679712-8 (Version None)
Quarter: 2008Q1

REPORT INFORMATION
  Report Type: 
  Country: None (occurrence: None)
  Receive Date: 20080321
  Receipt Date: 20080306
  Transmission Date: 20080703
  Serious: Yes (Life-Threatening, Other)
  Sender: FDA-Public Use
  Company Number: 2008000522

PATIENT
  Age: 80 Year
  Sex: Male

DRUGS (1)
  1. ERLOTINIB (ERLOTINIB HCL) (TABLET) (ERLOTINIB HCL) [Suspect]
     Indication: NON-SMALL CELL LUNG CANCER
     Dosage: (150 MG, QD), ORAL
     Route: 048
     Dates: start: 20080207, end: 20080226

REACTIONS (3)
  - BLOOD BILIRUBIN INCREASED [None]
  - RED BLOOD CELL MORPHOLOGY ABNORMAL [None]
  - THROMBOTIC THROMBOCYTOPENIC PURPURA [None]
